FAERS Safety Report 5245942-2 (Version None)
Quarter: 2007Q1

REPORT INFORMATION
  Report Type: 
  Country: None (occurrence: None)
  Receive Date: 20070220
  Receipt Date: 20070207
  Transmission Date: 20070707
  Serious: Yes (Other)
  Sender: FDA-Public Use
  Company Number: THYR-10401

PATIENT
  Age: 79 Year
  Sex: Female
  Weight: 77 kg

DRUGS (3)
  1. THYROGEN [Suspect]
     Indication: DRUG USE FOR UNKNOWN INDICATION
     Dates: start: 20061106, end: 20061107
  2. LEVOTHYROXINE SODIUM [Concomitant]
  3. IRBESARTAN [Concomitant]

REACTIONS (15)
  - ANXIETY [None]
  - ARTHRALGIA [None]
  - ASTHENIA [None]
  - BALANCE DISORDER [None]
  - BLOOD THYROID STIMULATING HORMONE INCREASED [None]
  - BONE PAIN [None]
  - CEREBRAL ATROPHY [None]
  - CHILLS [None]
  - DYSPNOEA EXERTIONAL [None]
  - NAUSEA [None]
  - THYROGLOBULIN DECREASED [None]
  - THYROID DISORDER [None]
  - VENTRICULAR HYPERTROPHY [None]
  - VERTIGO [None]
  - VOMITING [None]
